FAERS Safety Report 11097061 (Version 1)
Quarter: 2015Q2

REPORT INFORMATION
  Report Type: Spontaneous
  Country: US (occurrence: None)
  Receive Date: 20150506
  Receipt Date: 20150506
  Transmission Date: 20150821
  Serious: No
  Sender: FDA-Public Use
  Company Number: None

PATIENT
  Age: 47 Year
  Sex: Female

DRUGS (1)
  1. COPAXONE [Suspect]
     Active Substance: GLATIRAMER ACETATE
     Indication: MULTIPLE SCLEROSIS
     Dosage: INJECT 1 PFS 3 TIME WEEKLY SUBCUTANEOUS
     Route: 058

REACTIONS (4)
  - Injection site erythema [None]
  - Injection site swelling [None]
  - Injection site urticaria [None]
  - Injection site pain [None]

NARRATIVE: CASE EVENT DATE: 20150505
